FAERS Safety Report 11908457 (Version 1)
Quarter: 2016Q1

REPORT INFORMATION
  Report Type: Spontaneous
  Country: US (occurrence: US)
  Receive Date: 20160111
  Receipt Date: 20160111
  Transmission Date: 20160526
  Serious: Yes (Hospitalization)
  Sender: FDA-Public Use
  Company Number: US-ABBVIE-16P-163-1535107-00

PATIENT
  Sex: Male

DRUGS (1)
  1. ANDROGEL [Suspect]
     Active Substance: TESTOSTERONE
     Indication: ANDROGEN REPLACEMENT THERAPY
     Dosage: APPLY 1 PACKET TO SKIN EVERY MORNING AS DIRECTED
     Route: 061
     Dates: start: 201204

REACTIONS (2)
  - Cerebellar haemorrhage [Unknown]
  - Intracranial venous sinus thrombosis [Unknown]
